FAERS Safety Report 7867775-0 (Version None)
Quarter: 2011Q4

REPORT INFORMATION
  Report Type: 
  Country: None (occurrence: None)
  Receive Date: 20111028
  Receipt Date: 20111019
  Transmission Date: 20120403
  Serious: Yes (Other)
  Sender: FDA-Public Use
  Company Number: BR-ASTRAZENECA-2011SE63659

PATIENT
  Age: 86 Year
  Sex: Female
  Weight: 55 kg

DRUGS (3)
  1. SIMVASTATIN [Concomitant]
     Route: 048
     Dates: start: 20050101
  2. ENABLEX [Concomitant]
  3. ATACAND [Suspect]
     Indication: HYPERTENSION
     Route: 048
     Dates: start: 20050101, end: 20110901

REACTIONS (3)
  - BLOOD PRESSURE INCREASED [None]
  - URINARY INCONTINENCE [None]
  - DRUG INEFFECTIVE [None]
